FAERS Safety Report 11569601 (Version 1)
Quarter: 2015Q3

REPORT INFORMATION
  Report Type: Spontaneous
  Country: US (occurrence: None)
  Receive Date: 20150928
  Receipt Date: 20150928
  Transmission Date: 20151125
  Serious: Yes (Other)
  Sender: FDA-Public Use
  Company Number: None

PATIENT
  Age: 56 Year
  Sex: Female
  Weight: 95.26 kg

DRUGS (21)
  1. ACTEMRA [Concomitant]
     Active Substance: TOCILIZUMAB
  2. DICLOFENAC [Concomitant]
     Active Substance: DICLOFENAC
  3. FOLIC ACID. [Concomitant]
     Active Substance: FOLIC ACID
  4. SINGULAIR [Concomitant]
     Active Substance: MONTELUKAST SODIUM
  5. VALERIAN ROOT [Concomitant]
     Active Substance: VALERIAN
  6. SCHIFF MOVE FREE ULTRA OMEGA [Concomitant]
  7. MULTI -VITAMIN [Concomitant]
  8. VITAMIN D [Concomitant]
     Active Substance: CHOLECALCIFEROL
  9. MAGNESIUM [Concomitant]
     Active Substance: MAGNESIUM
  10. NATURE CHOLESTOFF [Concomitant]
  11. DULOXETINE. [Suspect]
     Active Substance: DULOXETINE
     Indication: FIBROMYALGIA
     Route: 048
     Dates: start: 20060301, end: 20150926
  12. GABAPENTIN. [Concomitant]
     Active Substance: GABAPENTIN
  13. CALCIUM [Concomitant]
     Active Substance: CALCIUM
  14. METHOTREXATE [Concomitant]
     Active Substance: METHOTREXATE
  15. DILTIAZEM [Concomitant]
     Active Substance: DILTIAZEM
  16. VALSARTAN. [Concomitant]
     Active Substance: VALSARTAN
  17. METHADONE [Concomitant]
     Active Substance: METHADONE HYDROCHLORIDE
  18. TIZANIDINE. [Concomitant]
     Active Substance: TIZANIDINE
  19. HCTZ [Concomitant]
     Active Substance: HYDROCHLOROTHIAZIDE
  20. FLAXSEED [Concomitant]
     Active Substance: FLAX SEED
  21. VITAMIN C [Concomitant]
     Active Substance: ASCORBIC ACID

REACTIONS (8)
  - Nausea [None]
  - Dyskinesia [None]
  - Panic attack [None]
  - Paraesthesia [None]
  - Dizziness [None]
  - Tremor [None]
  - Hyperhidrosis [None]
  - Crying [None]

NARRATIVE: CASE EVENT DATE: 20150926
